FAERS Safety Report 10463456 (Version 1)
Quarter: 2014Q3

REPORT INFORMATION
  Report Type: Spontaneous
  Country: US (occurrence: None)
  Receive Date: 20140917
  Receipt Date: 20140917
  Transmission Date: 20150326
  Serious: Yes (Other)
  Sender: FDA-Public Use
  Company Number: ABR_01813_2014

PATIENT
  Age: 51 Year
  Sex: Female
  Weight: 105.24 kg

DRUGS (2)
  1. EDARBI [Suspect]
     Active Substance: AZILSARTAN KAMEDOXOMIL
     Indication: HYPERTENSION
     Route: 048
     Dates: start: 20140905, end: 20140907
  2. ATIVAN [Concomitant]
     Active Substance: LORAZEPAM

REACTIONS (2)
  - Chest discomfort [None]
  - Hypotension [None]

NARRATIVE: CASE EVENT DATE: 20140907
